FAERS Safety Report 5999960-7 (Version None)
Quarter: 2008Q4

REPORT INFORMATION
  Report Type: 
  Country: None (occurrence: None)
  Receive Date: 20081215
  Receipt Date: 20081208
  Transmission Date: 20090506
  Serious: Yes (Hospitalization)
  Sender: FDA-Public Use
  Company Number: PHHY2008FR15056

PATIENT
  Sex: Female

DRUGS (3)
  1. TEGRETOL [Suspect]
     Indication: MOOD ALTERED
     Dosage: 200 MG DAILY
     Route: 048
     Dates: start: 20080515, end: 20080615
  2. TERCIAN [Suspect]
     Indication: ANXIETY
     Dosage: 5 MG DAILY
     Route: 048
     Dates: start: 20080515, end: 20080615
  3. RISPERDAL [Suspect]
     Indication: MOOD ALTERED
     Dosage: 1 MG DAILY
     Route: 048
     Dates: start: 20080521, end: 20080615

REACTIONS (12)
  - APHTHOUS STOMATITIS [None]
  - CYTOLYTIC HEPATITIS [None]
  - DRUG RASH WITH EOSINOPHILIA AND SYSTEMIC SYMPTOMS [None]
  - EOSINOPHILIA [None]
  - FACE OEDEMA [None]
  - GENERAL SYMPTOM [None]
  - HEPATOMEGALY [None]
  - MONONUCLEOSIS SYNDROME [None]
  - PRURITUS [None]
  - PYREXIA [None]
  - URTICARIA [None]
  - WHITE BLOOD CELL COUNT INCREASED [None]
